FAERS Safety Report 15899615 (Version 2)
Quarter: 2021Q1

REPORT INFORMATION
  Report Type: Spontaneous
  Country: US (occurrence: US)
  Receive Date: 20190201
  Receipt Date: 20210303
  Transmission Date: 20210419
  Serious: No
  Sender: FDA-Public Use
  Company Number: US-PFIZER INC-2019047047

PATIENT
  Age: 78 Year
  Sex: Female

DRUGS (1)
  1. LYRICA [Suspect]
     Active Substance: PREGABALIN
     Dosage: 200 MG

REACTIONS (4)
  - Drug ineffective [Unknown]
  - Respiratory disorder [Unknown]
  - Wheelchair user [Unknown]
  - Decreased activity [Unknown]

NARRATIVE: CASE EVENT DATE: 20190122
